FAERS Safety Report 11877207 (Version 1)
Quarter: 2015Q4

REPORT INFORMATION
  Report Type: Other
  Country: DE (occurrence: DE)
  Receive Date: 20151229
  Receipt Date: 20151229
  Transmission Date: 20160305
  Serious: Yes (Hospitalization, Other)
  Sender: FDA-Public Use
  Company Number: DE-SHIRE-DE-002239

PATIENT
  Age: 47 Year
  Sex: Male
  Weight: 64.4 kg

DRUGS (3)
  1. REVESTIVE [Suspect]
     Active Substance: TEDUGLUTIDE
     Indication: SHORT-BOWEL SYNDROME
     Dosage: 0.32 ML, 1X/DAY:QD
     Route: 058
     Dates: start: 20150608
  2. LIPIDS NOS W/PROTEINS NOS/VITAMINS NOS [Concomitant]
     Indication: NUTRITIONAL SUPPLEMENTATION
     Dosage: INFUSIONS REDUCED
     Route: 042
     Dates: start: 2015
  3. LIPIDS NOS W/PROTEINS NOS/VITAMINS NOS [Concomitant]
     Dosage: UNK
     Route: 042
     Dates: start: 201408, end: 2015

REACTIONS (5)
  - Abdominal pain [Recovered/Resolved]
  - Arthralgia [Recovered/Resolved]
  - Device related infection [Recovered/Resolved]
  - Chills [Recovered/Resolved]
  - Pyrexia [Recovered/Resolved]

NARRATIVE: CASE EVENT DATE: 201507
